FAERS Safety Report 15029608 (Version 1)
Quarter: 2018Q2

REPORT INFORMATION
  Report Type: Spontaneous
  Country: US (occurrence: US)
  Receive Date: 20180529
  Receipt Date: 20180529
  Transmission Date: 20180711
  Serious: Yes (Life-Threatening)
  Sender: FDA-Public Use
  Company Number: None

PATIENT
  Age: 71 Year
  Sex: Male
  Weight: 113.85 kg

DRUGS (11)
  1. VALSARTAN. [Concomitant]
     Active Substance: VALSARTAN
  2. AMLODIPINE BESYLATE. [Concomitant]
     Active Substance: AMLODIPINE BESYLATE
  3. PROAIR HFA [Concomitant]
     Active Substance: ALBUTEROL SULFATE
  4. MAGNESIUM [Concomitant]
     Active Substance: MAGNESIUM
  5. HYDROCODONE [Concomitant]
     Active Substance: HYDROCODONE
  6. MULTI-VITAMIN [Concomitant]
     Active Substance: .ALPHA.-TOCOPHEROL ACETATE, DL-\ASCORBIC ACID\CYANOCOBALAMIN\FLUORIDE ION\FOLIC ACID\NIACIN\PYRIDOXINE\RIBOFLAVIN\THIAMINE\VITAMIN A\VITAMIN D
  7. METFORMIN [Suspect]
     Active Substance: METFORMIN HYDROCHLORIDE
     Indication: DIABETES MELLITUS
     Dosage: ?          QUANTITY:1 DF DOSAGE FORM;?
     Route: 048
     Dates: end: 201804
  8. GLIPIZIDE. [Concomitant]
     Active Substance: GLIPIZIDE
  9. INSULIN [Concomitant]
     Active Substance: INSULIN NOS
  10. CLONIDINE. [Concomitant]
     Active Substance: CLONIDINE
  11. NIACIN. [Concomitant]
     Active Substance: NIACIN

REACTIONS (7)
  - Cardiac disorder [None]
  - Chills [None]
  - Asthenia [None]
  - Pain in extremity [None]
  - Tension [None]
  - Peripheral swelling [None]
  - Feeling abnormal [None]

NARRATIVE: CASE EVENT DATE: 201804
